FAERS Safety Report 14555381 (Version 1)
Quarter: 2018Q1

REPORT INFORMATION
  Report Type: Spontaneous
  Country: US (occurrence: US)
  Receive Date: 20180220
  Receipt Date: 20180220
  Transmission Date: 20180509
  Serious: No
  Sender: FDA-Public Use
  Company Number: US-GLAXOSMITHKLINE-US2018GSK027861

PATIENT
  Age: 62 Year
  Sex: Female

DRUGS (1)
  1. FLOVENT DISKUS [Suspect]
     Active Substance: FLUTICASONE PROPIONATE
     Indication: ASTHMA
     Dosage: 2 PUFF(S), BID
     Route: 055
     Dates: start: 20180214

REACTIONS (12)
  - Tongue discomfort [Recovering/Resolving]
  - Tongue discolouration [Recovering/Resolving]
  - Oral discomfort [Recovering/Resolving]
  - Paraesthesia oral [Recovering/Resolving]
  - Pharyngeal erythema [Recovering/Resolving]
  - Skin disorder [Unknown]
  - Skin induration [Unknown]
  - Swollen tongue [Recovering/Resolving]
  - Pharyngeal oedema [Recovering/Resolving]
  - Laceration [Unknown]
  - Throat irritation [Recovering/Resolving]
  - Dry mouth [Recovering/Resolving]

NARRATIVE: CASE EVENT DATE: 20180214
